FAERS Safety Report 4371382-4 (Version None)
Quarter: 2004Q2

REPORT INFORMATION
  Report Type: 
  Country: None (occurrence: None)
  Receive Date: 20040607
  Receipt Date: 20040512
  Transmission Date: 20050107
  Serious: Yes (Hospitalization, Other)
  Sender: FDA-Public Use
  Company Number: PHBS2004JP06473

PATIENT
  Age: 85 Year
  Sex: Female

DRUGS (1)
  1. LAMISIL [Suspect]
     Indication: NAIL TINEA
     Dosage: 125 MG/D
     Route: 048
     Dates: start: 20030715, end: 20030715

REACTIONS (3)
  - ANOREXIA [None]
  - BLOOD PRESSURE INCREASED [None]
  - DIZZINESS [None]
